FAERS Safety Report 25044600 (Version 1)
Quarter: 2025Q1

REPORT INFORMATION
  Report Type: Spontaneous
  Country: US (occurrence: US)
  Receive Date: 20250306
  Receipt Date: 20250306
  Transmission Date: 20250409
  Serious: No
  Sender: ALVOGEN
  Company Number: US-ALVOGEN-2024093260

PATIENT
  Sex: Male

DRUGS (5)
  1. BUPRENORPHINE AND NALOXONE [Suspect]
     Active Substance: BUPRENORPHINE HYDROCHLORIDE\NALOXONE HYDROCHLORIDE
     Indication: Drug dependence
     Route: 060
  2. BUPRENORPHINE AND NALOXONE [Suspect]
     Active Substance: BUPRENORPHINE HYDROCHLORIDE\NALOXONE HYDROCHLORIDE
     Indication: Drug dependence
     Dosage: 8MG/2MG TWICE A DAY FOR 14 DAYS?EXP. DATE: UU-AUG-2025 ?TIME STAMP: L3 330007:49
     Route: 060
     Dates: start: 20240313
  3. BUPRENORPHINE AND NALOXONE [Suspect]
     Active Substance: BUPRENORPHINE HYDROCHLORIDE\NALOXONE HYDROCHLORIDE
     Indication: Drug dependence
     Dosage: 12MG/3MG?EXP. DATE: UU-DEC-2025 ?TIME STAMP: L4402417:07?S NO. 148490169136
     Route: 060
     Dates: start: 20240604
  4. IBUPROFEN [Concomitant]
     Active Substance: IBUPROFEN
     Indication: Product used for unknown indication
  5. ASPIRIN [Concomitant]
     Active Substance: ASPIRIN
     Indication: Product used for unknown indication

REACTIONS (14)
  - Cardiac disorder [Unknown]
  - Lip swelling [Unknown]
  - Gait disturbance [Unknown]
  - Head discomfort [Unknown]
  - Bladder discomfort [Unknown]
  - Eye irritation [Unknown]
  - Taste disorder [Unknown]
  - Eye pain [Unknown]
  - Headache [Unknown]
  - Pain [Unknown]
  - Drug effect less than expected [Unknown]
  - Product quality issue [Unknown]
  - Product use in unapproved indication [Unknown]
  - Wrong technique in product usage process [Unknown]
